FAERS Safety Report 14543080 (Version 1)
Quarter: 2018Q1

REPORT INFORMATION
  Report Type: Spontaneous
  Country: GB (occurrence: GB)
  Receive Date: 20180216
  Receipt Date: 20180216
  Transmission Date: 20180509
  Serious: Yes (Hospitalization)
  Sender: FDA-Public Use
  Company Number: GB-TEVA-2018-GB-858503

PATIENT
  Age: 46 Year
  Sex: Female
  Weight: 47 kg

DRUGS (17)
  1. DOXYCYCLINE. [Suspect]
     Active Substance: DOXYCYCLINE
     Dosage: 200 MILLIGRAM DAILY;
     Route: 048
     Dates: start: 20171111, end: 20171118
  2. SERTRALINE [Concomitant]
     Active Substance: SERTRALINE HYDROCHLORIDE
  3. PREDNISOLONE. [Concomitant]
     Active Substance: PREDNISOLONE
  4. CASPOFUNGIN [Suspect]
     Active Substance: CASPOFUNGIN
     Dosage: 50 MILLIGRAM DAILY;
     Route: 065
     Dates: start: 20171114, end: 20171118
  5. LISINOPRIL. [Concomitant]
     Active Substance: LISINOPRIL
  6. AZATHIOPRINE. [Concomitant]
     Active Substance: AZATHIOPRINE
  7. OMEPRAZOLE. [Concomitant]
     Active Substance: OMEPRAZOLE
  8. CLONAZEPAM. [Concomitant]
     Active Substance: CLONAZEPAM
  9. ACETYLSALICYLIC ACID [Concomitant]
     Active Substance: ASPIRIN
  10. AMIODARONE [Suspect]
     Active Substance: AMIODARONE
     Dosage: 900 MILLIGRAM DAILY; 900MG OVER 24 HOURS (AFTER INITIAL LOADING DOSE)
     Route: 065
     Dates: start: 20171118, end: 20171119
  11. PROGRAF [Concomitant]
     Active Substance: TACROLIMUS\TACROLIMUS ANHYDROUS
  12. TRIMETHOPRIM. [Concomitant]
     Active Substance: TRIMETHOPRIM
  13. TACROLIMUS. [Suspect]
     Active Substance: TACROLIMUS
     Route: 065
     Dates: start: 20171101
  14. MEROPENEM TRIHYDRATE [Suspect]
     Active Substance: MEROPENEM
     Dosage: 2000 MILLIGRAM DAILY;
     Route: 065
     Dates: start: 20171113, end: 20171118
  15. AMLODIPINE [Concomitant]
     Active Substance: AMLODIPINE BESYLATE
  16. FOLIC ACID. [Concomitant]
     Active Substance: FOLIC ACID
  17. COTRIMOXAZOLE [Suspect]
     Active Substance: SULFAMETHOXAZOLE\TRIMETHOPRIM
     Indication: PNEUMOCYSTIS JIROVECII PNEUMONIA
     Dosage: 3360 MILLIGRAM DAILY;
     Route: 065
     Dates: start: 20171115, end: 20171119

REACTIONS (2)
  - Nikolsky^s sign [Unknown]
  - Toxic epidermal necrolysis [Recovering/Resolving]

NARRATIVE: CASE EVENT DATE: 20171120
